FAERS Safety Report 10004072 (Version 2)
Quarter: 2014Q1

REPORT INFORMATION
  Report Type: Spontaneous
  Country: US (occurrence: US)
  Receive Date: 20140312
  Receipt Date: 20140312
  Transmission Date: 20141002
  Serious: Yes (Other)
  Sender: FDA-Public Use
  Company Number: US-GE HEALTHCARE MEDICAL DIAGNOSTICS-OSCN-PR-1012S-0290

PATIENT
  Age: 71 Year
  Sex: Male

DRUGS (2)
  1. OMNISCAN [Suspect]
     Indication: CAROTID ARTERY OCCLUSION
     Route: 042
     Dates: start: 20070309, end: 20070309
  2. SIMVASTATIN [Concomitant]
     Indication: PRODUCT USED FOR UNKNOWN INDICATION

REACTIONS (1)
  - Nephrogenic systemic fibrosis [Not Recovered/Not Resolved]
